FAERS Safety Report 8172408-2 (Version None)
Quarter: 2012Q1

REPORT INFORMATION
  Report Type: 
  Country: None (occurrence: None)
  Receive Date: 20120224
  Receipt Date: 20120224
  Transmission Date: 20120608
  Serious: No
  Sender: FDA-Public Use
  Company Number: None

PATIENT
  Sex: Female

DRUGS (1)
  1. PROZAC [Suspect]
     Indication: DEPRESSION
     Dosage: PROZAC (FLUOXETINE) 20   THREE DAILY ORAL
     Route: 048

REACTIONS (2)
  - UNEVALUABLE EVENT [None]
  - PRODUCT SUBSTITUTION ISSUE [None]
